FAERS Safety Report 7342992-7 (Version None)
Quarter: 2011Q1

REPORT INFORMATION
  Report Type: 
  Country: None (occurrence: None)
  Receive Date: 20110310
  Receipt Date: 20110225
  Transmission Date: 20110831
  Serious: Yes (Other)
  Sender: FDA-Public Use
  Company Number: PHHY2011AU15849

PATIENT
  Sex: Female

DRUGS (2)
  1. ACLASTA [Suspect]
     Dosage: UNK
     Dates: start: 20100824
  2. PREDNISOLONE [Concomitant]
     Dosage: 12.5 MG

REACTIONS (13)
  - FATIGUE [None]
  - MUSCLE SPASMS [None]
  - MYALGIA [None]
  - INSOMNIA [None]
  - JOINT SWELLING [None]
  - HYPOVENTILATION [None]
  - ABDOMINAL DISTENSION [None]
  - PAIN [None]
  - DIZZINESS [None]
  - MALAISE [None]
  - DYSSTASIA [None]
  - ASTHENIA [None]
  - ARTHRALGIA [None]
